FAERS Safety Report 10216001 (Version 1)
Quarter: 2014Q2

REPORT INFORMATION
  Report Type: Spontaneous
  Country: US (occurrence: US)
  Receive Date: 20140604
  Receipt Date: 20140604
  Transmission Date: 20141212
  Serious: Yes (Hospitalization, Other)
  Sender: FDA-Public Use
  Company Number: 2014SP003060

PATIENT
  Age: 26 Year
  Sex: Female

DRUGS (2)
  1. METHOTREXATE [Suspect]
     Indication: PRODUCT USED FOR UNKNOWN INDICATION
     Dosage: UNK
  2. ENBREL [Suspect]
     Indication: RHEUMATOID ARTHRITIS
     Dosage: 50 MG, QWK
     Dates: start: 2004

REACTIONS (24)
  - Cardiac tamponade [Recovered/Resolved]
  - Pericardial effusion [Recovered/Resolved]
  - Chest discomfort [Unknown]
  - Pleurisy [Recovered/Resolved]
  - Chest pain [Recovered/Resolved]
  - Arthritis [Unknown]
  - Stress [Unknown]
  - Dyspepsia [Recovered/Resolved]
  - Choking [Recovered/Resolved]
  - Aspiration [Recovered/Resolved]
  - Lymphadenitis [Recovered/Resolved]
  - Nausea [Recovered/Resolved]
  - Aphagia [Recovered/Resolved]
  - Throat irritation [Recovered/Resolved]
  - Respiratory tract congestion [Recovered/Resolved]
  - Anxiety [Unknown]
  - Dyspnoea [Recovered/Resolved]
  - Hyperhidrosis [Recovered/Resolved]
  - Feeling abnormal [Recovered/Resolved]
  - Peripheral coldness [Recovered/Resolved]
  - Hypotension [Recovered/Resolved]
  - Syncope [Recovered/Resolved]
  - Infection [Recovered/Resolved]
  - Abdominal pain [None]
